FAERS Safety Report 7631157-7 (Version None)
Quarter: 2011Q3

REPORT INFORMATION
  Report Type: 
  Country: None (occurrence: None)
  Receive Date: 20110725
  Receipt Date: 20110713
  Transmission Date: 20111222
  Serious: Yes (Hospitalization)
  Sender: FDA-Public Use
  Company Number: FR-JNJFOC-20110706863

PATIENT
  Age: 56 Year
  Sex: Male

DRUGS (14)
  1. REMICADE [Suspect]
     Route: 042
     Dates: start: 20100716
  2. LYRICA [Concomitant]
     Indication: PRODUCT USED FOR UNKNOWN INDICATION
  3. SPIRIVA [Concomitant]
     Indication: RESPIRATORY DISORDER
  4. SCOPODERM [Concomitant]
     Indication: RESPIRATORY DISORDER
  5. LEPTICUR [Concomitant]
     Indication: PRODUCT USED FOR UNKNOWN INDICATION
  6. REMICADE [Suspect]
     Route: 042
     Dates: start: 20100521
  7. HALDOL [Concomitant]
     Indication: PRODUCT USED FOR UNKNOWN INDICATION
  8. ACETAMINOPHEN [Concomitant]
     Indication: PRODUCT USED FOR UNKNOWN INDICATION
  9. ATACAND [Concomitant]
     Indication: PRODUCT USED FOR UNKNOWN INDICATION
  10. CLOZAPINE [Concomitant]
     Indication: PRODUCT USED FOR UNKNOWN INDICATION
  11. ALBUTEROL [Concomitant]
     Indication: RESPIRATORY DISORDER
  12. REMICADE [Suspect]
     Indication: ILL-DEFINED DISORDER
     Route: 042
     Dates: start: 20100510
  13. IMOVANE [Concomitant]
     Indication: PRODUCT USED FOR UNKNOWN INDICATION
  14. FORADIL [Concomitant]
     Indication: RESPIRATORY DISORDER

REACTIONS (1)
  - MYCOBACTERIUM AVIUM COMPLEX INFECTION [None]
